FAERS Safety Report 24166256 (Version 1)
Quarter: 2024Q3

REPORT INFORMATION
  Report Type: Spontaneous
  Country: GB (occurrence: GB)
  Receive Date: 20240802
  Receipt Date: 20240802
  Transmission Date: 20241017
  Serious: Yes (Other)
  Sender: TORRENT
  Company Number: None

PATIENT
  Age: 65 Year
  Sex: Male
  Weight: 83 kg

DRUGS (2)
  1. ATORVASTATIN [Suspect]
     Active Substance: ATORVASTATIN
     Indication: Blood cholesterol increased
     Route: 065
  2. ROSUVASTATIN [Suspect]
     Active Substance: ROSUVASTATIN\ROSUVASTATIN CALCIUM
     Indication: Product used for unknown indication
     Route: 065

REACTIONS (11)
  - Medication error [Unknown]
  - Vitreous floaters [Not Recovered/Not Resolved]
  - Nightmare [Unknown]
  - Cough [Unknown]
  - Pruritus [Unknown]
  - Fatigue [Unknown]
  - Memory impairment [Unknown]
  - Irritability [Unknown]
  - Belligerence [Unknown]
  - Muscle spasms [Unknown]
  - Pain [Unknown]
